FAERS Safety Report 5093567-4 (Version None)
Quarter: 2006Q3

REPORT INFORMATION
  Report Type: 
  Country: None (occurrence: None)
  Receive Date: 20060829
  Receipt Date: 20060810
  Transmission Date: 20061208
  Serious: Yes (Death)
  Sender: FDA-Public Use
  Company Number: US200608002339

PATIENT
  Age: 26 Year
  Sex: Male

DRUGS (1)
  1. CYMBALTA [Suspect]
     Dates: start: 20060101

REACTIONS (1)
  - DEATH [None]
